FAERS Safety Report 15211212 (Version 1)
Quarter: 2018Q3

REPORT INFORMATION
  Report Type: Spontaneous
  Country: US (occurrence: US)
  Receive Date: 20180630
  Receipt Date: 20180630
  Transmission Date: 20181010
  Serious: Yes (Other)
  Sender: FDA-Public Use
  Company Number: None

PATIENT
  Age: 55 Year
  Sex: Female
  Weight: 54 kg

DRUGS (9)
  1. ATORVASTATIN [Concomitant]
     Active Substance: ATORVASTATIN
  2. NARATRIPTAN [Concomitant]
     Active Substance: NARATRIPTAN HYDROCHLORIDE
  3. MAGNESIUM [Concomitant]
     Active Substance: MAGNESIUM
  4. MELATONIN [Concomitant]
     Active Substance: MELATONIN
  5. ELETRIPTAN. [Concomitant]
     Active Substance: ELETRIPTAN
  6. AIMOVIG [Suspect]
     Active Substance: ERENUMAB-AOOE
     Indication: MIGRAINE
     Dosage: ?          QUANTITY:1 INJECTION(S);OTHER FREQUENCY:1 TIME PER MONTH;?
     Route: 030
  7. CANDESARTEN [Concomitant]
  8. GABAPENTIN. [Concomitant]
     Active Substance: GABAPENTIN
  9. DYMISTA [Concomitant]
     Active Substance: AZELASTINE HYDROCHLORIDE\FLUTICASONE PROPIONATE

REACTIONS (6)
  - Visual field defect [None]
  - Vision blurred [None]
  - Photopsia [None]
  - Migraine with aura [None]
  - Headache [None]
  - Migraine [None]

NARRATIVE: CASE EVENT DATE: 20180630
